FAERS Safety Report 20997645 (Version 3)
Quarter: 2022Q3

REPORT INFORMATION
  Report Type: Report from Study
  Country: US (occurrence: US)
  Receive Date: 20220623
  Receipt Date: 20220713
  Transmission Date: 20221027
  Serious: Yes (Death, Hospitalization)
  Sender: FDA-Public Use
  Company Number: US-PPDUS-2022ZX000742

PATIENT
  Age: 17 Year
  Sex: Female

DRUGS (3)
  1. FINTEPLA [Suspect]
     Active Substance: FENFLURAMINE
     Indication: Severe myoclonic epilepsy of infancy
     Route: 048
     Dates: start: 2018
  2. CLONAZEPAM [Concomitant]
     Active Substance: CLONAZEPAM
     Indication: Seizure
     Route: 065
  3. KEPPRA [Concomitant]
     Active Substance: LEVETIRACETAM
     Indication: Seizure
     Route: 065

REACTIONS (5)
  - Paroxysmal sympathetic hyperactivity [Fatal]
  - Respiratory distress [Fatal]
  - Dyspnoea [Fatal]
  - General physical health deterioration [Fatal]
  - Seizure [Fatal]

NARRATIVE: CASE EVENT DATE: 20220615
